FAERS Safety Report 4896423-7 (Version None)
Quarter: 2006Q1

REPORT INFORMATION
  Report Type: 
  Country: None (occurrence: None)
  Receive Date: 20060126
  Receipt Date: 20060118
  Transmission Date: 20060701
  Serious: Yes (Other)
  Sender: FDA-Public Use
  Company Number: 2006010724

PATIENT
  Age: 72 Year
  Sex: Female

DRUGS (7)
  1. SERTRALINE [Suspect]
     Indication: DEPRESSION
     Dosage: (200 MG), ORAL
     Route: 048
     Dates: start: 20051213
  2. ASPIRIN [Concomitant]
  3. ATENOLOL [Concomitant]
  4. LITHIUM CARBONATE [Concomitant]
  5. ZOPICLONE (ZOPICLONE) [Concomitant]
  6. NOVOMIX (INSULIN ASPART) [Concomitant]
  7. CORACTEN (NIFEDIPINE) [Concomitant]

REACTIONS (1)
  - MYOCLONUS [None]
